FAERS Safety Report 6093883-3 (Version None)
Quarter: 2009Q1

REPORT INFORMATION
  Report Type: 
  Country: None (occurrence: None)
  Receive Date: 20090224
  Receipt Date: 20090224
  Transmission Date: 20090719
  Serious: Yes (Hospitalization)
  Sender: FDA-Public Use
  Company Number: None

PATIENT
  Age: 61 Year
  Sex: Female
  Weight: 68.0396 kg

DRUGS (1)
  1. CHANTIX [Suspect]
     Indication: SMOKING CESSATION THERAPY
     Dosage: 1 MG BID, RECENTLY STARTED

REACTIONS (7)
  - AGITATION [None]
  - DELUSION [None]
  - EATING DISORDER [None]
  - IMPAIRED SELF-CARE [None]
  - PARANOIA [None]
  - PSYCHOTIC DISORDER [None]
  - TOBACCO USER [None]
